FAERS Safety Report 6754866-0 (Version None)
Quarter: 2010Q2

REPORT INFORMATION
  Report Type: 
  Country: None (occurrence: None)
  Receive Date: 20100603
  Receipt Date: 20100601
  Transmission Date: 20101027
  Serious: Yes (Hospitalization, Disabling, Other)
  Sender: FDA-Public Use
  Company Number: US-MERCK-0910USA03486

PATIENT
  Age: 51 Year
  Sex: Female
  Weight: 70 kg

DRUGS (10)
  1. FOSAMAX [Suspect]
     Indication: OSTEOPOROSIS
     Route: 048
     Dates: start: 19980101, end: 20010109
  2. FOSAMAX [Suspect]
     Route: 048
     Dates: start: 20010801, end: 20071220
  3. FOSAMAX [Suspect]
     Route: 048
     Dates: start: 19970801, end: 20000101
  4. FOSAMAX [Suspect]
     Route: 048
     Dates: end: 20070607
  5. FOSAMAX [Suspect]
     Indication: OSTEOPENIA
     Route: 048
     Dates: start: 19980101, end: 20010109
  6. FOSAMAX [Suspect]
     Route: 048
     Dates: start: 20010801, end: 20071220
  7. FOSAMAX [Suspect]
     Route: 048
     Dates: start: 19970801, end: 20000101
  8. FOSAMAX [Suspect]
     Route: 048
     Dates: end: 20070607
  9. SYNTHROID [Concomitant]
     Indication: THYROIDECTOMY
     Route: 065
     Dates: start: 19760101
  10. AMBIEN [Concomitant]
     Indication: SLEEP DISORDER THERAPY
     Route: 065
     Dates: start: 19930101

REACTIONS (24)
  - BACK PAIN [None]
  - BONE DISORDER [None]
  - BONE LESION [None]
  - CONCUSSION [None]
  - DEPRESSION [None]
  - FEMALE ORGASMIC DISORDER [None]
  - FEMUR FRACTURE [None]
  - FIBULA FRACTURE [None]
  - GAIT DISTURBANCE [None]
  - GASTROOESOPHAGEAL REFLUX DISEASE [None]
  - INSOMNIA [None]
  - INTERVERTEBRAL DISC DEGENERATION [None]
  - LIBIDO DECREASED [None]
  - LOW TURNOVER OSTEOPATHY [None]
  - METASTASES TO BONE [None]
  - MITRAL VALVE PROLAPSE [None]
  - MUSCULOSKELETAL CHEST PAIN [None]
  - OSTEOMA [None]
  - PALPITATIONS [None]
  - PLANTAR FASCIITIS [None]
  - PYREXIA [None]
  - RIB FRACTURE [None]
  - STRESS FRACTURE [None]
  - TIBIA FRACTURE [None]
